FAERS Safety Report 5287229-8 (Version None)
Quarter: 2007Q1

REPORT INFORMATION
  Report Type: 
  Country: None (occurrence: None)
  Receive Date: 20070116
  Receipt Date: 20061011
  Transmission Date: 20070707
  Serious: No
  Sender: FDA-Public Use
  Company Number: 2006SP003623

PATIENT
  Age: 65 Year
  Sex: Female
  Weight: 66.6788 kg

DRUGS (11)
  1. LUNESTA [Suspect]
     Indication: INSOMNIA
     Dosage: SEE IMAGE
     Route: 048
     Dates: start: 20061001, end: 20061001
  2. LUNESTA [Suspect]
     Indication: INSOMNIA
     Dosage: SEE IMAGE
     Route: 048
     Dates: start: 20060925
  3. PRAMLINTIDE ACETATE [Concomitant]
  4. LANTUS [Concomitant]
  5. NOVOLOG [Concomitant]
  6. NAPROXEN [Concomitant]
  7. TOPROL-XL [Concomitant]
  8. COZAAR [Concomitant]
  9. ZYRTEC [Concomitant]
  10. NASAL SALINE [Concomitant]
  11. LEVAQUIN [Concomitant]

REACTIONS (5)
  - DRUG INEFFECTIVE [None]
  - FEELING ABNORMAL [None]
  - INITIAL INSOMNIA [None]
  - SINUSITIS [None]
  - SLUGGISHNESS [None]
